FAERS Safety Report 23784603 (Version 1)
Quarter: 2024Q2

REPORT INFORMATION
  Report Type: Spontaneous
  Country: HU (occurrence: HU)
  Receive Date: 20240425
  Receipt Date: 20240425
  Transmission Date: 20240716
  Serious: Yes (Other)
  Sender: FDA-Public Use
  Company Number: HU-Harrow Eye-2156050

PATIENT

DRUGS (4)
  1. TOBRADEX ST [Suspect]
     Active Substance: DEXAMETHASONE\TOBRAMYCIN
     Indication: Product used for unknown indication
  2. MAXIDEX [Suspect]
     Active Substance: DEXAMETHASONE
  3. MAXIDEX [Suspect]
     Active Substance: DEXAMETHASONE
  4. MAXIDEX [Suspect]
     Active Substance: DEXAMETHASONE

REACTIONS (1)
  - Recession of chamber angle of eye [Unknown]
